FAERS Safety Report 9074991 (Version 2)
Quarter: 2013Q1

REPORT INFORMATION
  Report Type: Report from Study
  Country: US (occurrence: US)
  Receive Date: 20130129
  Receipt Date: 20130211
  Transmission Date: 20140127
  Serious: Yes (Death, Hospitalization)
  Sender: FDA-Public Use
  Company Number: US-ACTELION-A-US2012-75328

PATIENT
  Age: 57 Year
  Sex: Female

DRUGS (4)
  1. TRACLEER [Suspect]
     Indication: PULMONARY ARTERIAL HYPERTENSION
     Dosage: UNK
     Route: 048
  2. SILDENAFIL [Concomitant]
  3. REMODULIN [Concomitant]
  4. ASPIRIN [Concomitant]

REACTIONS (6)
  - Death [Fatal]
  - Myocardial infarction [Unknown]
  - Respiratory distress [Unknown]
  - Bronchial secretion retention [Unknown]
  - Fluid retention [Unknown]
  - Oedema peripheral [Unknown]
